FAERS Safety Report 17937639 (Version 3)
Quarter: 2021Q4

REPORT INFORMATION
  Report Type: Report from Study
  Country: US (occurrence: US)
  Receive Date: 20200624
  Receipt Date: 20211215
  Transmission Date: 20220303
  Serious: No
  Sender: FDA-Public Use
  Company Number: None

PATIENT
  Age: 10 Year
  Sex: Female

DRUGS (2)
  1. ILARIS [Suspect]
     Active Substance: CANAKINUMAB
     Indication: Pyrexia
     Dosage: 127.5 MG, QMO
     Route: 058
     Dates: start: 20190620
  2. ILARIS [Suspect]
     Active Substance: CANAKINUMAB
     Dosage: 135 MG, QMO
     Route: 058
     Dates: start: 20190620

REACTIONS (3)
  - Pyrexia [Unknown]
  - Product prescribing error [Unknown]
  - Incorrect dose administered [Unknown]

NARRATIVE: CASE EVENT DATE: 20200618
